FAERS Safety Report 11517989 (Version 2)
Quarter: 2015Q3

REPORT INFORMATION
  Report Type: Spontaneous
  Country: FR (occurrence: FR)
  Receive Date: 20150917
  Receipt Date: 20150922
  Transmission Date: 20151125
  Serious: Yes (Other)
  Sender: FDA-Public Use
  Company Number: FR-SA-2015SA138620

PATIENT
  Age: 89 Year
  Sex: Female

DRUGS (1)
  1. LOVENOX [Suspect]
     Active Substance: ENOXAPARIN SODIUM
     Dosage: START DATE: SUMMER 2015 SEVERAL WEEKS
     Route: 065
     Dates: start: 2015

REACTIONS (1)
  - Delirium [Unknown]

NARRATIVE: CASE EVENT DATE: 2015
